FAERS Safety Report 8451279 (Version 2)
Quarter: 2012Q4

REPORT INFORMATION
  Report Type: 
  Country: US (occurrence: US)
  Receive Date: 20120309
  Receipt Date: 20120927
  Transmission Date: 20130627
  Serious: No
  Sender: FDA-Public Use
  Company Number: US-AMGEN-USASP2012000414

PATIENT
  Age: 75 Year
  Sex: Female

DRUGS (9)
  1. PROLIA [Suspect]
     Indication: OSTEOPOROSIS POSTMENOPAUSAL
     Dosage: UNK UNK, q6mo
     Dates: start: 201107
  2. ATENOLOL [Concomitant]
     Dosage: 1 mg, qd
  3. OMEPRAZOLE [Concomitant]
     Dosage: 1 mg, qd
  4. LEVOTHROID [Concomitant]
     Dosage: 1 mug, qd
  5. TRIAMTERENE AND HYDROCHLOROTHIAZID [Concomitant]
     Dosage: UNK UNK, qd
  6. NORTRIPTYLINE [Concomitant]
     Dosage: UNK UNK, qd
  7. ASPIRIN [Concomitant]
  8. CITRACAL PETITES [Concomitant]
  9. TRIAMTERENE [Concomitant]
     Dosage: UNK

REACTIONS (12)
  - Anxiety [Unknown]
  - Injection site pain [Unknown]
  - Micturition urgency [Recovered/Resolved]
  - Feeling hot [Recovered/Resolved]
  - Nausea [Recovered/Resolved]
  - Headache [Recovered/Resolved]
  - Malaise [Recovered/Resolved]
  - Skin mass [Not Recovered/Not Resolved]
  - Rash erythematous [Not Recovered/Not Resolved]
  - Burning sensation [Not Recovered/Not Resolved]
  - Pruritus [Not Recovered/Not Resolved]
  - Pain in extremity [Not Recovered/Not Resolved]
